FAERS Safety Report 14673725 (Version 1)
Quarter: 2018Q1

REPORT INFORMATION
  Report Type: Spontaneous
  Country: US (occurrence: US)
  Receive Date: 20180322
  Receipt Date: 20180322
  Transmission Date: 20180509
  Serious: Yes (Other)
  Sender: FDA-Public Use
  Company Number: None

PATIENT
  Sex: Female

DRUGS (2)
  1. BUPIVACAINE. [Suspect]
     Active Substance: BUPIVACAINE
     Indication: SYNOVITIS
     Dosage: ?          OTHER FREQUENCY:ONCE;?
     Route: 035
     Dates: start: 20180308, end: 20180308
  2. LIDOCAINE. [Suspect]
     Active Substance: LIDOCAINE
     Dosage: ?          OTHER FREQUENCY:ONCE;?
     Route: 035
     Dates: start: 20180308, end: 20180308

REACTIONS (3)
  - Asthenia [None]
  - Bradycardia [None]
  - Product quality issue [None]
